FAERS Safety Report 6300286-2 (Version None)
Quarter: 2009Q3

REPORT INFORMATION
  Report Type: 
  Country: None (occurrence: None)
  Receive Date: 20090806
  Receipt Date: 20090728
  Transmission Date: 20100115
  Serious: Yes (Other)
  Sender: FDA-Public Use
  Company Number: TR-ABBOTT-09P-161-0587707-00

PATIENT
  Age: 80 Year
  Sex: Male
  Weight: 68 kg

DRUGS (6)
  1. KLACID I.V. [Suspect]
     Indication: CHRONIC OBSTRUCTIVE PULMONARY DISEASE
     Dosage: 500 MG X 2 ONCE DAILY
     Dates: start: 20090622, end: 20090626
  2. CEFTRIAXON [Concomitant]
     Indication: CHRONIC OBSTRUCTIVE PULMONARY DISEASE
     Dates: start: 20090622, end: 20090629
  3. VENTOLIN [Concomitant]
     Indication: CHRONIC OBSTRUCTIVE PULMONARY DISEASE
     Dosage: NEBULIZER
     Dates: start: 20090622
  4. COMBIVENT [Concomitant]
     Indication: CHRONIC OBSTRUCTIVE PULMONARY DISEASE
     Dosage: NEBULIZER
     Dates: start: 20090622
  5. PULMICORT-100 [Concomitant]
     Indication: CHRONIC OBSTRUCTIVE PULMONARY DISEASE
     Dosage: NEBULIZER
     Dates: start: 20090622
  6. TEOBAG [Concomitant]
     Indication: CHRONIC OBSTRUCTIVE PULMONARY DISEASE
     Route: 042
     Dates: start: 20090622

REACTIONS (3)
  - INJECTION SITE ERYTHEMA [None]
  - PAIN IN EXTREMITY [None]
  - VASCULITIS [None]
